FAERS Safety Report 5666908-4 (Version None)
Quarter: 2008Q1

REPORT INFORMATION
  Report Type: 
  Country: None (occurrence: None)
  Receive Date: 20080315
  Receipt Date: 20080102
  Transmission Date: 20080703
  Serious: No
  Sender: FDA-Public Use
  Company Number: US-ABBOTT-08P-163-0432506-00

PATIENT
  Sex: Female
  Weight: 78.088 kg

DRUGS (15)
  1. HUMIRA [Suspect]
     Indication: RHEUMATOID ARTHRITIS
     Route: 058
     Dates: start: 20071221
  2. HYDROXYCHLOROQUINE PHOSPHATE [Concomitant]
     Indication: RHEUMATOID ARTHRITIS
     Route: 048
  3. METHOTREXATE [Concomitant]
     Indication: RHEUMATOID ARTHRITIS
     Route: 048
  4. FOLIC ACID [Concomitant]
     Indication: RHEUMATOID ARTHRITIS
     Route: 048
  5. PREDNISONE [Concomitant]
     Indication: RHEUMATOID ARTHRITIS
     Route: 048
  6. PYRIDOXINE HYDROCHLORIDE [Concomitant]
     Indication: VITAMIN SUPPLEMENTATION
     Route: 048
  7. LAMOTRIGINE [Concomitant]
     Indication: CONVULSION
     Route: 048
  8. PHENYTOIN [Concomitant]
     Indication: CONVULSION
     Route: 048
  9. DESIPRAMINE HCL [Concomitant]
     Indication: DRUG USE FOR UNKNOWN INDICATION
     Dosage: 1 1/2 PILLS
  10. ZOLPIDEM TARTRATE [Concomitant]
     Indication: INSOMNIA
     Route: 048
  11. CLONAZEPAM [Concomitant]
     Indication: ANXIETY
     Route: 048
  12. ZIPRASIDONE HYDROCHLORIDE [Concomitant]
     Indication: BIPOLAR DISORDER
     Route: 048
  13. OMEPRAZOLE [Concomitant]
     Indication: GASTROOESOPHAGEAL REFLUX DISEASE
     Route: 048
  14. FAMOTIDINE [Concomitant]
     Indication: GASTROOESOPHAGEAL REFLUX DISEASE
     Route: 048
  15. NEBULIZER [Concomitant]
     Indication: ASTHMA
     Route: 055

REACTIONS (1)
  - SOMNOLENCE [None]
